FAERS Safety Report 6985635-4 (Version None)
Quarter: 2010Q3

REPORT INFORMATION
  Report Type: 
  Country: None (occurrence: None)
  Receive Date: 20100915
  Receipt Date: 20100907
  Transmission Date: 20110219
  Serious: Yes (Other)
  Sender: FDA-Public Use
  Company Number: GXBR2010US01543

PATIENT
  Sex: Male
  Weight: 90.703 kg

DRUGS (6)
  1. LABETALOL HYDROCHLORIDE TABLETS, USP (NGX) [Suspect]
     Indication: HYPERTENSION
     Dosage: 200 MG, BID
     Route: 048
  2. SILDENAFIL [Interacting]
     Dosage: 20 MG, UNK
     Route: 048
     Dates: start: 20100701, end: 20100801
  3. EPLERENONE [Concomitant]
     Indication: HYPERTENSION
     Dosage: UNK
     Route: 048
  4. LISINOPRIL [Concomitant]
     Indication: HYPERTENSION
     Dosage: UNK
     Route: 048
  5. HYDROCHLOROTHIAZIDE [Concomitant]
     Indication: HYPERTENSION
     Dosage: UNK
     Route: 048
  6. NIFEDIPINE [Concomitant]
     Indication: HYPERTENSION
     Dosage: 60 MG, BID
     Route: 048

REACTIONS (2)
  - DRUG INTERACTION [None]
  - HYPOTENSION [None]
